FAERS Safety Report 5950279-X (Version None)
Quarter: 2008Q4

REPORT INFORMATION
  Report Type: 
  Country: None (occurrence: None)
  Receive Date: 20081022
  Receipt Date: 20080630
  Transmission Date: 20090506
  Serious: No
  Sender: FDA-Public Use
  Company Number: ALL1-2008-01912

PATIENT
  Age: 7 Year
  Sex: Male
  Weight: 10 kg

DRUGS (5)
  1. VYVANSE [Suspect]
     Indication: ATTENTION DEFICIT/HYPERACTIVITY DISORDER
     Dosage: 30 MG, 1X/DAY:QD, ORAL ; 30 MG, 1X/DAY:QD, ORAL ; 1/2 30MG, 1X/DAY:QD, ORAL
     Route: 048
     Dates: start: 20071001, end: 20080401
  2. VYVANSE [Suspect]
     Indication: ATTENTION DEFICIT/HYPERACTIVITY DISORDER
     Dosage: 30 MG, 1X/DAY:QD, ORAL ; 30 MG, 1X/DAY:QD, ORAL ; 1/2 30MG, 1X/DAY:QD, ORAL
     Route: 048
     Dates: start: 20080601, end: 20080627
  3. VYVANSE [Suspect]
     Indication: ATTENTION DEFICIT/HYPERACTIVITY DISORDER
     Dosage: 30 MG, 1X/DAY:QD, ORAL ; 30 MG, 1X/DAY:QD, ORAL ; 1/2 30MG, 1X/DAY:QD, ORAL
     Route: 048
     Dates: start: 20080628
  4. GROWTROPIN (SOMATROPIN) [Concomitant]
  5. ZOLOFT [Concomitant]

REACTIONS (9)
  - DECREASED APPETITE [None]
  - DISTURBANCE IN ATTENTION [None]
  - HYPERSENSITIVITY [None]
  - INCORRECT DOSE ADMINISTERED [None]
  - INSOMNIA [None]
  - IRRITABILITY [None]
  - NEGATIVISM [None]
  - PSYCHOMOTOR HYPERACTIVITY [None]
  - WEIGHT GAIN POOR [None]
